FAERS Safety Report 7853427-X (Version None)
Quarter: 2011Q4

REPORT INFORMATION
  Report Type: 
  Country: None (occurrence: None)
  Receive Date: 20111026
  Receipt Date: 20111018
  Transmission Date: 20120403
  Serious: Yes (Hospitalization)
  Sender: FDA-Public Use
  Company Number: SG-MILLENNIUM PHARMACEUTICALS, INC.-2011-04968

PATIENT

DRUGS (1)
  1. VELCADE [Suspect]
     Indication: LYMPHOMA
     Dosage: 1.3 MG/M2, CYCLIC
     Route: 042
     Dates: start: 20110531, end: 20110811

REACTIONS (1)
  - RADIATION SKIN INJURY [None]
